FAERS Safety Report 9421263 (Version 2)
Quarter: 2014Q1

REPORT INFORMATION
  Report Type: Spontaneous
  Country: US (occurrence: US)
  Receive Date: 20130725
  Receipt Date: 20140103
  Transmission Date: 20141002
  Serious: Yes (Hospitalization, Other)
  Sender: FDA-Public Use
  Company Number: US-B.I. PHARMACEUTICALS,INC./RIDGEFIELD-2013-BI-21795BP

PATIENT
  Sex: Male
  Weight: 92.25 kg

DRUGS (13)
  1. PRADAXA [Suspect]
     Indication: ANTICOAGULANT THERAPY
     Dates: start: 20111014, end: 20120330
  2. PRADAXA [Suspect]
     Indication: ATRIAL FIBRILLATION
  3. SIMVASTATIN [Concomitant]
     Dosage: 5 MG
     Route: 048
  4. BUMEX [Concomitant]
     Dosage: 2 MG
  5. LISINOPRIL [Concomitant]
     Dosage: 20 MG
  6. CARDIZEM CD [Concomitant]
     Dosage: 240 MG
  7. ALBUTEROL NEB [Concomitant]
  8. ATROVENT NEB [Concomitant]
  9. JANUVIA [Concomitant]
     Dosage: 100 MG
  10. KLOR-CON [Concomitant]
     Dosage: 20 MEQ
  11. GLUCOPHAGE [Concomitant]
     Indication: DIABETES MELLITUS
  12. DULERA [Concomitant]
     Dosage: 2 PUF
  13. COMBIVENT [Concomitant]

REACTIONS (3)
  - Upper gastrointestinal haemorrhage [Unknown]
  - Haemorrhagic anaemia [Unknown]
  - Prothrombin time ratio increased [Unknown]
